FAERS Safety Report 15772529 (Version 1)
Quarter: 2018Q4

REPORT INFORMATION
  Report Type: Spontaneous
  Country: US (occurrence: US)
  Receive Date: 20181228
  Receipt Date: 20181228
  Transmission Date: 20190205
  Serious: No
  Sender: FDA-Public Use
  Company Number: US-SA-2018SA394775

PATIENT
  Age: 36 Year
  Sex: Male

DRUGS (1)
  1. ALPROLIX [Suspect]
     Active Substance: EFTRENONACOG ALFA
     Indication: PROPHYLAXIS
     Dosage: 3000 IU, QW
     Route: 042

REACTIONS (1)
  - Blood urine present [Not Recovered/Not Resolved]

NARRATIVE: CASE EVENT DATE: 20181220
